FAERS Safety Report 8313703 (Version 3)
Quarter: 2012Q4

REPORT INFORMATION
  Report Type: 
  Country: CA (occurrence: CA)
  Receive Date: 20111228
  Receipt Date: 20121011
  Transmission Date: 20130627
  Serious: Yes (Other)
  Sender: FDA-Public Use
  Company Number: CA-ROCHE-1024169

PATIENT
  Sex: Female
  Weight: 64 kg

DRUGS (11)
  1. XOLAIR [Suspect]
     Indication: ASTHMA
     Route: 058
     Dates: start: 20101017
  2. SPIRIVA [Concomitant]
  3. SYMBICORT [Concomitant]
     Route: 065
  4. SINGULAIR [Concomitant]
  5. VENTOLINE [Concomitant]
     Route: 065
  6. EPIPEN [Concomitant]
  7. PANTOLOC [Concomitant]
  8. REACTINE (CANADA) [Concomitant]
  9. ZOPICLONE [Concomitant]
  10. DICLECTIN [Concomitant]
     Route: 065
  11. MAXERAN [Concomitant]
     Route: 065

REACTIONS (6)
  - Haematoma [Unknown]
  - Gestational diabetes [Unknown]
  - Prolonged labour [Unknown]
  - Haemorrhage [Unknown]
  - Exposure during pregnancy [Unknown]
  - Normal newborn [Unknown]
